FAERS Safety Report 4764180-0 (Version None)
Quarter: 2005Q3

REPORT INFORMATION
  Report Type: 
  Country: None (occurrence: None)
  Receive Date: 20050901
  Receipt Date: 20050620
  Transmission Date: 20060218
  Serious: Yes (Other)
  Sender: FDA-Public Use
  Company Number: 200511243BWH

PATIENT
  Age: 46 Year
  Sex: Male

DRUGS (3)
  1. LEVITRA [Suspect]
     Dosage: 20 MG QD ORAL
     Route: 048
     Dates: start: 20050615
  2. LEVITRA [Suspect]
     Dosage: 20 MG QD ORAL
     Route: 048
     Dates: start: 20050618
  3. BLOOD PRESSURE MEDICATIONS [Concomitant]

REACTIONS (1)
  - ERECTION INCREASED [None]
